FAERS Safety Report 7716829-8 (Version None)
Quarter: 2011Q3

REPORT INFORMATION
  Report Type: 
  Country: None (occurrence: None)
  Receive Date: 20110829
  Receipt Date: 20110819
  Transmission Date: 20111222
  Serious: Yes (Disabling, Other)
  Sender: FDA-Public Use
  Company Number: PHHY2011GB74533

PATIENT
  Age: 49 Year
  Sex: Male

DRUGS (14)
  1. METRONIDAZOLE [Concomitant]
  2. MOVIPREP [Concomitant]
  3. SIMAVASTATIN [Concomitant]
  4. ZINC SULFATE [Concomitant]
  5. GENTAMICIN [Concomitant]
  6. ATENOLOL [Concomitant]
  7. OMEPRAZOLE [Concomitant]
  8. SENNA [Concomitant]
  9. VANCOMYCIN HCL [Concomitant]
  10. ASCORBIC ACID [Concomitant]
  11. LISINOPRIL [Concomitant]
  12. ACETAMINOPHEN [Concomitant]
  13. LINEZOLID [Suspect]
     Indication: DEVICE RELATED INFECTION
     Dosage: 600 MG, BID
     Route: 042
     Dates: start: 20110728, end: 20110805
  14. TRAMADOL HCL [Suspect]
     Indication: PAIN
     Dosage: 100 MG, PRN
     Route: 048
     Dates: start: 20110720, end: 20110804

REACTIONS (8)
  - AGGRESSION [None]
  - THROMBOCYTOPENIA [None]
  - PANCYTOPENIA [None]
  - ANAEMIA [None]
  - ABNORMAL BEHAVIOUR [None]
  - PSYCHOTIC BEHAVIOUR [None]
  - HALLUCINATIONS, MIXED [None]
  - PARANOIA [None]
